FAERS Safety Report 19965272 (Version 1)
Quarter: 2021Q4

REPORT INFORMATION
  Report Type: Spontaneous
  Country: GB (occurrence: GB)
  Receive Date: 20211018
  Receipt Date: 20211018
  Transmission Date: 20220304
  Serious: Yes (Life-Threatening, Hospitalization, Other)
  Sender: FDA-Public Use
  Company Number: GB-MLMSERVICE-20211001-3139076-1

PATIENT
  Age: 60 Year
  Sex: Female

DRUGS (1)
  1. MORPHINE SULFATE [Suspect]
     Active Substance: MORPHINE SULFATE
     Indication: Product used for unknown indication
     Dosage: 25 MG, UNK
     Route: 042

REACTIONS (4)
  - Obstructive airways disorder [Recovered/Resolved]
  - Unresponsive to stimuli [Recovered/Resolved]
  - Toxicity to various agents [Recovered/Resolved]
  - Respiratory arrest [Recovered/Resolved]
